FAERS Safety Report 5239982-7 (Version None)
Quarter: 2007Q1

REPORT INFORMATION
  Report Type: 
  Country: None (occurrence: None)
  Receive Date: 20070216
  Receipt Date: 20070205
  Transmission Date: 20070707
  Serious: Yes (Death, Hospitalization, Other)
  Sender: FDA-Public Use
  Company Number: US-PFIZER INC-2007002939

PATIENT
  Sex: Male

DRUGS (7)
  1. SU-011,248 [Suspect]
     Indication: GASTROINTESTINAL STROMAL TUMOUR
     Route: 048
     Dates: start: 20060817, end: 20061201
  2. GENTAMICIN SULFATE [Concomitant]
  3. MYLANTA [Concomitant]
  4. VITAMIN K [Concomitant]
  5. TIMENTIN [Concomitant]
  6. POLYGELINE [Concomitant]
  7. DOBUTAMINE [Concomitant]

REACTIONS (9)
  - COAGULOPATHY [None]
  - ESCHERICHIA INFECTION [None]
  - ESCHERICHIA SEPSIS [None]
  - HEPATIC FAILURE [None]
  - HEPATIC NECROSIS [None]
  - LIVER ABSCESS [None]
  - METASTASES TO LIVER [None]
  - SYNCOPE [None]
  - THROMBOCYTOPENIA [None]
